FAERS Safety Report 16945418 (Version 1)
Quarter: 2019Q4

REPORT INFORMATION
  Report Type: Spontaneous
  Country: TR (occurrence: TR)
  Receive Date: 20191022
  Receipt Date: 20191022
  Transmission Date: 20200122
  Serious: Yes (Other)
  Sender: FDA-Public Use
  Company Number: NVSC2019TR011913

PATIENT
  Age: 70 Year
  Sex: Male

DRUGS (1)
  1. IMATINIB. [Suspect]
     Active Substance: IMATINIB MESYLATE
     Indication: CHRONIC MYELOID LEUKAEMIA
     Dosage: 400 MG
     Route: 065

REACTIONS (8)
  - Blast cell crisis [Unknown]
  - Balance disorder [Unknown]
  - Gait disturbance [Unknown]
  - Dyskinesia [Unknown]
  - Chronic myeloid leukaemia recurrent [Unknown]
  - Sleep talking [Unknown]
  - Vision blurred [Unknown]
  - Urinary incontinence [Unknown]
